FAERS Safety Report 19519430 (Version 1)
Quarter: 2021Q3

REPORT INFORMATION
  Report Type: Spontaneous
  Country: US (occurrence: US)
  Receive Date: 20210710
  Receipt Date: 20210710
  Transmission Date: 20211014
  Serious: Yes (Hospitalization)
  Sender: FDA-Public Use
  Company Number: None

PATIENT
  Sex: Female
  Weight: 68.1 kg

DRUGS (4)
  1. 5?FLUOROURACIL [Suspect]
     Active Substance: FLUOROURACIL
     Dates: end: 20210701
  2. LEUCOVORIN CALCIUM. [Suspect]
     Active Substance: LEUCOVORIN CALCIUM
     Dates: end: 20210701
  3. CAMPTOSAR [Suspect]
     Active Substance: IRINOTECAN HYDROCHLORIDE
     Dates: end: 20210701
  4. ELOXATIN [Suspect]
     Active Substance: OXALIPLATIN
     Dates: end: 20210701

REACTIONS (7)
  - Abdominal distension [None]
  - Neutropenia [None]
  - Diarrhoea [None]
  - Toxicity to various agents [None]
  - White blood cell count decreased [None]
  - Nausea [None]
  - Eructation [None]

NARRATIVE: CASE EVENT DATE: 20210708
